FAERS Safety Report 9073422 (Version 1)
Quarter: 2013Q1

REPORT INFORMATION
  Report Type: Report from Study
  Country: US (occurrence: US)
  Receive Date: 20130129
  Receipt Date: 20130129
  Transmission Date: 20140127
  Serious: No
  Sender: FDA-Public Use
  Company Number: US-ABBOTT-12P-163-0921364-00

PATIENT
  Age: 56 None
  Sex: Female
  Weight: 122.58 kg

DRUGS (11)
  1. HUMIRA 40 MG/ 0.8 ML PRE-FILLED SYRINGE [Suspect]
     Indication: PSORIATIC ARTHROPATHY
     Dates: start: 2011
  2. ESTRACE [Concomitant]
     Indication: HORMONE REPLACEMENT THERAPY
  3. FOLIC ACID [Concomitant]
     Indication: PSORIATIC ARTHROPATHY
  4. LYRICA [Concomitant]
     Indication: PAIN
  5. METHOTREXATE [Concomitant]
     Indication: PSORIATIC ARTHROPATHY
  6. MORPHINE SULFATE [Concomitant]
     Indication: PAIN
  7. PROMETRIUM [Concomitant]
     Indication: PRODUCT USED FOR UNKNOWN INDICATION
  8. PROTONIX [Concomitant]
     Indication: GASTROOESOPHAGEAL REFLUX DISEASE
  9. ROBAXIN [Concomitant]
     Indication: PAIN
  10. ZYRTEC [Concomitant]
     Indication: HYPERSENSITIVITY
  11. CYCLOPENTATE EYE DROPS [Concomitant]
     Indication: EYE DISORDER

REACTIONS (4)
  - Upper-airway cough syndrome [Not Recovered/Not Resolved]
  - Sinus congestion [Not Recovered/Not Resolved]
  - Cough [Not Recovered/Not Resolved]
  - Chest pain [Recovered/Resolved]
